FAERS Safety Report 25858945 (Version 1)
Quarter: 2025Q3

REPORT INFORMATION
  Report Type: Spontaneous
  Country: EU (occurrence: EU)
  Receive Date: 20250929
  Receipt Date: 20250929
  Transmission Date: 20251020
  Serious: Yes (Life-Threatening, Other)
  Sender: KEDRION
  Company Number: EU-KEDRION-010488

PATIENT
  Age: 30 Year
  Sex: Female

DRUGS (6)
  1. HUMAN IMMUNOGLOBULIN G [Suspect]
     Active Substance: HUMAN IMMUNOGLOBULIN G
     Indication: Systemic lupus erythematosus
     Route: 042
  2. WARFARIN [Concomitant]
     Active Substance: WARFARIN
     Indication: Antiphospholipid syndrome
     Route: 065
  3. Hydroxychloroquine. [Concomitant]
     Indication: Systemic lupus erythematosus
     Route: 065
  4. UNSPECIFIED INGREDIENT [Concomitant]
     Active Substance: UNSPECIFIED INGREDIENT
     Indication: Lupus pneumonitis
     Route: 065
  5. UNSPECIFIED INGREDIENT [Concomitant]
     Active Substance: UNSPECIFIED INGREDIENT
     Indication: Lupus pneumonitis
     Route: 065
  6. CYCLOPHOSPHAMIDE [Concomitant]
     Active Substance: CYCLOPHOSPHAMIDE
     Indication: Lupus pneumonitis
     Route: 065

REACTIONS (3)
  - Haemolytic anaemia [Recovered/Resolved]
  - Off label use [Unknown]
  - Therapy responder [Unknown]
